FAERS Safety Report 6500128-6 (Version None)
Quarter: 2009Q4

REPORT INFORMATION
  Report Type: 
  Country: None (occurrence: None)
  Receive Date: 20091214
  Receipt Date: 20091214
  Transmission Date: 20100525
  Serious: Yes (Hospitalization)
  Sender: FDA-Public Use
  Company Number: None

PATIENT
  Sex: Male
  Weight: 75 kg

DRUGS (1)
  1. MEMANTINE HCL [Suspect]
     Dosage: 3150 MG

REACTIONS (6)
  - ANAEMIA [None]
  - FALL [None]
  - MALIGNANT NEOPLASM PROGRESSION [None]
  - METASTASES TO ADRENALS [None]
  - METASTASES TO CENTRAL NERVOUS SYSTEM [None]
  - METASTASES TO LIVER [None]
